FAERS Safety Report 8413389-3 (Version None)
Quarter: 2012Q2

REPORT INFORMATION
  Report Type: 
  Country: None (occurrence: None)
  Receive Date: 20120605
  Receipt Date: 20120529
  Transmission Date: 20120825
  Serious: Yes (Hospitalization)
  Sender: FDA-Public Use
  Company Number: PHHY2012US045862

PATIENT
  Age: 32 Year
  Sex: Male

DRUGS (5)
  1. BENZODIAZEPINES [Concomitant]
  2. METHAMPHETAMINE HYDROCHLORIDE [Concomitant]
  3. ALPRAZOLAM [Suspect]
     Dosage: 6-8 MG
  4. FENTANYL [Suspect]
     Dosage: 2 PATCHES OF 50 UG, QH
     Route: 048
  5. OPIOIDS [Concomitant]

REACTIONS (10)
  - SOMNOLENCE [None]
  - MENTAL STATUS CHANGES [None]
  - DIZZINESS [None]
  - INCORRECT ROUTE OF DRUG ADMINISTRATION [None]
  - MIOSIS [None]
  - UNRESPONSIVE TO STIMULI [None]
  - DEPRESSED LEVEL OF CONSCIOUSNESS [None]
  - RESPIRATORY RATE DECREASED [None]
  - BRADYCARDIA [None]
  - BLOOD PRESSURE DECREASED [None]
